FAERS Safety Report 6657205-9 (Version None)
Quarter: 2010Q1

REPORT INFORMATION
  Report Type: 
  Country: None (occurrence: None)
  Receive Date: 20100330
  Receipt Date: 20100324
  Transmission Date: 20100710
  Serious: Yes (Disabling)
  Sender: FDA-Public Use
  Company Number: US-TEVA-228555USA

PATIENT
  Sex: Female

DRUGS (2)
  1. ACYCLOVIR SODIUM [Suspect]
     Indication: ORAL HERPES
     Route: 048
     Dates: start: 20100112, end: 20100120
  2. ACICLOVIR 200 MG CAPSULES [Concomitant]

REACTIONS (14)
  - ABASIA [None]
  - AMNESIA [None]
  - ARTHRALGIA [None]
  - BLINDNESS TRANSIENT [None]
  - COGNITIVE DISORDER [None]
  - DIPLOPIA [None]
  - DYSPNOEA [None]
  - HYPOAESTHESIA [None]
  - INSOMNIA [None]
  - MUSCULAR WEAKNESS [None]
  - MYALGIA [None]
  - PARAESTHESIA [None]
  - SENSORY DISTURBANCE [None]
  - VISUAL ACUITY REDUCED [None]
